FAERS Safety Report 13341475 (Version 2)
Quarter: 2017Q1

REPORT INFORMATION
  Report Type: Spontaneous
  Country: US (occurrence: US)
  Receive Date: 20170316
  Receipt Date: 20170322
  Transmission Date: 20170428
  Serious: Yes (Disabling, Other)
  Sender: FDA-Public Use
  Company Number: US-DRREDDYS-USA/USA/17/0087820

PATIENT
  Sex: Male

DRUGS (1)
  1. ATORVASTATIN [Suspect]
     Active Substance: ATORVASTATIN
     Indication: PRODUCT USED FOR UNKNOWN INDICATION
     Dosage: 6 WEEKS
     Route: 065

REACTIONS (3)
  - Impaired work ability [Unknown]
  - Impaired quality of life [Unknown]
  - Mitochondrial myopathy [Recovered/Resolved with Sequelae]
